FAERS Safety Report 22040260 (Version 4)
Quarter: 2025Q1

REPORT INFORMATION
  Report Type: Spontaneous
  Country: US (occurrence: US)
  Receive Date: 20230227
  Receipt Date: 20250213
  Transmission Date: 20250408
  Serious: No
  Sender: PFIZER
  Company Number: US-PFIZER INC-PV202300034611

PATIENT
  Age: 73 Year
  Sex: Female

DRUGS (3)
  1. IBRANCE [Suspect]
     Active Substance: PALBOCICLIB
     Indication: Breast cancer metastatic
  2. IBRANCE [Suspect]
     Active Substance: PALBOCICLIB
  3. IBRANCE [Suspect]
     Active Substance: PALBOCICLIB

REACTIONS (6)
  - Neoplasm progression [Unknown]
  - Cancer pain [Unknown]
  - Tendon injury [Unknown]
  - Peroneal nerve palsy [Unknown]
  - Illness [Unknown]
  - Diarrhoea [Unknown]
